FAERS Safety Report 13526518 (Version 1)
Quarter: 2017Q2

REPORT INFORMATION
  Report Type: Spontaneous
  Country: US (occurrence: US)
  Receive Date: 20170508
  Receipt Date: 20170508
  Transmission Date: 20170830
  Serious: Yes (Other)
  Sender: FDA-Public Use
  Company Number: None

PATIENT
  Age: 31 Year
  Sex: Female
  Weight: 99 kg

DRUGS (7)
  1. IRON [Concomitant]
     Active Substance: IRON
  2. ZYRTEC [Concomitant]
     Active Substance: CETIRIZINE HYDROCHLORIDE
  3. MAGNESIUM [Concomitant]
     Active Substance: MAGNESIUM
  4. DULOXETINE DR [Suspect]
     Active Substance: DULOXETINE
     Indication: ANXIETY
     Dosage: ?          QUANTITY:1 CAPSULE(S);?
     Route: 048
     Dates: start: 20170123, end: 20170506
  5. DULOXETINE DR [Suspect]
     Active Substance: DULOXETINE
     Indication: DEPRESSION
     Dosage: ?          QUANTITY:1 CAPSULE(S);?
     Route: 048
     Dates: start: 20170123, end: 20170506
  6. VITAMIN D [Concomitant]
     Active Substance: CHOLECALCIFEROL
  7. POTASSIUM [Concomitant]
     Active Substance: POTASSIUM

REACTIONS (9)
  - Sleep terror [None]
  - Chills [None]
  - Paraesthesia [None]
  - Photophobia [None]
  - Vertigo [None]
  - Withdrawal syndrome [None]
  - Nightmare [None]
  - Increased appetite [None]
  - Hyperhidrosis [None]

NARRATIVE: CASE EVENT DATE: 20170506
